FAERS Safety Report 13020135 (Version 1)
Quarter: 2016Q4

REPORT INFORMATION
  Report Type: Spontaneous
  Country: JP (occurrence: JP)
  Receive Date: 20161212
  Receipt Date: 20161212
  Transmission Date: 20170207
  Serious: Yes (Life-Threatening, Hospitalization, Other)
  Sender: FDA-Public Use
  Company Number: JP-BRISTOL-MYERS SQUIBB COMPANY-BMS-2016-049488

PATIENT
  Age: 77 Year
  Sex: Female

DRUGS (8)
  1. LYRICA [Concomitant]
     Active Substance: PREGABALIN
     Indication: NEURALGIA
     Dosage: 25 MG, QD
     Route: 048
     Dates: start: 20150220
  2. ORENCIA [Suspect]
     Active Substance: ABATACEPT
     Indication: RHEUMATOID ARTHRITIS
     Route: 041
  3. KOLBET [Concomitant]
     Active Substance: IGURATIMOD
     Indication: RHEUMATOID ARTHRITIS
     Dosage: 25 MG, QD
     Route: 048
     Dates: start: 20160422
  4. ACTONEL [Concomitant]
     Active Substance: RISEDRONATE SODIUM
     Indication: OSTEOPOROSIS
     Dosage: 17.5 MG, UNK
     Route: 048
     Dates: start: 20100402
  5. ALDIOXA [Concomitant]
     Active Substance: ALDIOXA
     Indication: GASTRITIS
     Dosage: 100 MG, QD
     Route: 048
     Dates: start: 20100402
  6. ORENCIA [Suspect]
     Active Substance: ABATACEPT
     Indication: RHEUMATOID ARTHRITIS
     Dosage: 500 MG, UNK
     Route: 065
     Dates: start: 20160506, end: 20160506
  7. ALFACALCIDOL [Concomitant]
     Active Substance: ALFACALCIDOL
     Indication: OSTEOPOROSIS
     Dosage: 1 ?G, QD
     Route: 048
     Dates: start: 20100402
  8. AZULFIDINE EN-TABS [Concomitant]
     Active Substance: SULFASALAZINE
     Indication: RHEUMATOID ARTHRITIS
     Dosage: 500 MG, BID
     Route: 048
     Dates: start: 20100402

REACTIONS (1)
  - Anaphylactic shock [Recovered/Resolved]

NARRATIVE: CASE EVENT DATE: 20160506
